FAERS Safety Report 10238714 (Version 3)
Quarter: 2014Q3

REPORT INFORMATION
  Report Type: Spontaneous
  Country: PE (occurrence: PE)
  Receive Date: 20140616
  Receipt Date: 20140709
  Transmission Date: 20150326
  Serious: Yes (Congenital Anomaly, Other)
  Sender: FDA-Public Use
  Company Number: PE-NOVOPROD-412718

PATIENT
  Sex: Male
  Weight: 2.9 kg

DRUGS (4)
  1. LEVEMIR [Suspect]
     Active Substance: INSULIN DETEMIR
     Dosage: 18 IU, QD
     Route: 064
     Dates: end: 201402
  2. PANADOL                            /00020001/ [Concomitant]
     Indication: BONE PAIN
     Route: 064
  3. DOLOCORDRALAN EXTRA                /06415801/ [Concomitant]
     Indication: BONE PAIN
     Route: 064
  4. LEVEMIR [Suspect]
     Active Substance: INSULIN DETEMIR
     Indication: TYPE 2 DIABETES MELLITUS
     Dosage: 12 IU, QD
     Route: 064
     Dates: start: 20131122

REACTIONS (4)
  - Cleft lip [Unknown]
  - Premature baby [Unknown]
  - Anaemia [Unknown]
  - Foetal exposure during pregnancy [Recovered/Resolved]

NARRATIVE: CASE EVENT DATE: 20131122
